FAERS Safety Report 8969660 (Version 1)
Quarter: 2012Q4

REPORT INFORMATION
  Report Type: 
  Country: US (occurrence: US)
  Receive Date: 20121218
  Receipt Date: 20121218
  Transmission Date: 20130627
  Serious: No
  Sender: FDA-Public Use
  Company Number: US-BRISTOL-MYERS SQUIBB COMPANY-16234163

PATIENT
  Age: 49 Year
  Sex: Female
  Weight: 78 kg

DRUGS (4)
  1. ABILIFY [Suspect]
     Indication: BIPOLAR DISORDER
     Dosage: Started 2 Years ago,higher doses,Restarted on 16Nov11 lower dose,HS
     Route: 048
  2. WELLBUTRIN [Concomitant]
     Indication: BIPOLAR DISORDER
  3. DEPAKOTE [Concomitant]
  4. TOPAMAX [Concomitant]

REACTIONS (5)
  - Tardive dyskinesia [Unknown]
  - Somnolence [Unknown]
  - Confusional state [Unknown]
  - Thinking abnormal [Unknown]
  - Weight decreased [Unknown]
